FAERS Safety Report 14570273 (Version 1)
Quarter: 2018Q1

REPORT INFORMATION
  Report Type: Spontaneous
  Country: GR (occurrence: GR)
  Receive Date: 20180226
  Receipt Date: 20180226
  Transmission Date: 20180509
  Serious: Yes (Hospitalization)
  Sender: FDA-Public Use
  Company Number: GR-ROCHE-2080194

PATIENT
  Age: 60 Year
  Sex: Female

DRUGS (3)
  1. PREZOLON [Concomitant]
     Active Substance: PREDNISOLONE
  2. ESBRIET [Suspect]
     Active Substance: PIRFENIDONE
     Indication: PRODUCT USED FOR UNKNOWN INDICATION
     Route: 048
  3. CORTISONE [Concomitant]
     Active Substance: CORTISONE\HYDROCORTISONE

REACTIONS (2)
  - Rash [Recovered/Resolved]
  - Pneumonia [Recovered/Resolved]
